FAERS Safety Report 7420183-9 (Version None)
Quarter: 2011Q2

REPORT INFORMATION
  Report Type: 
  Country: None (occurrence: None)
  Receive Date: 20110418
  Receipt Date: 20110404
  Transmission Date: 20111010
  Serious: Yes (Hospitalization, Congenital Anomaly, Other)
  Sender: FDA-Public Use
  Company Number: FR-PFIZER INC-2006154166

PATIENT
  Sex: Female
  Weight: 2.2 kg

DRUGS (11)
  1. RETROVIR [Suspect]
     Indication: HIV INFECTION
     Route: 064
     Dates: end: 20000201
  2. ZERIT [Suspect]
     Indication: HIV INFECTION
     Dosage: UNK
     Route: 064
     Dates: end: 20000908
  3. VIRAMUNE [Suspect]
     Indication: INFECTION PROPHYLAXIS
     Route: 048
  4. ALBUTEROL SULFATE AUTOHALER [Concomitant]
  5. ZERIT [Suspect]
     Indication: INFECTION PROPHYLAXIS
     Dosage: UNK
     Route: 048
     Dates: start: 20000908
  6. SUSTIVA [Suspect]
     Indication: HIV INFECTION
     Dosage: UNK
     Route: 064
     Dates: end: 20000908
  7. SPASFON [Concomitant]
  8. VIDEX [Suspect]
     Indication: HIV INFECTION
     Dosage: UNK
     Route: 064
     Dates: end: 20000908
  9. VIRACEPT [Suspect]
     Indication: HIV INFECTION
     Route: 064
     Dates: end: 20000201
  10. COMBIVIR [Suspect]
     Indication: HIV INFECTION
     Route: 064
     Dates: start: 20000501
  11. RETROVIR [Suspect]
     Route: 064
     Dates: start: 20000908, end: 20000908

REACTIONS (15)
  - NEUTROPENIA [None]
  - DRUG EXPOSURE DURING PREGNANCY [None]
  - BRONCHITIS [None]
  - VASCULAR MALFORMATION PERIPHERAL [None]
  - HAEMANGIOMA OF SKIN [None]
  - PLATELET COUNT INCREASED [None]
  - CONGENITAL ANOMALY [None]
  - LYMPHOPENIA [None]
  - CEREBROVASCULAR DISORDER [None]
  - GASTROOESOPHAGEAL REFLUX DISEASE [None]
  - SLEEP DISORDER [None]
  - DEVELOPMENTAL DELAY [None]
  - PREMATURE LABOUR [None]
  - ECZEMA [None]
  - HYPERTRIGLYCERIDAEMIA [None]
